FAERS Safety Report 20598590 (Version 2)
Quarter: 2022Q1

REPORT INFORMATION
  Report Type: Spontaneous
  Country: US (occurrence: None)
  Receive Date: 20220315
  Receipt Date: 20220315
  Transmission Date: 20220424
  Serious: No
  Sender: FDA-Public Use
  Company Number: US-ROCHE-2880580

PATIENT
  Sex: Female

DRUGS (2)
  1. XOLAIR [Suspect]
     Active Substance: OMALIZUMAB
     Indication: Urticaria chronic
     Route: 065
     Dates: start: 202005, end: 202007
  2. XOLAIR [Suspect]
     Active Substance: OMALIZUMAB
     Indication: Asthma

REACTIONS (4)
  - Injection site inflammation [Recovered/Resolved]
  - Pyrexia [Recovered/Resolved]
  - Skin burning sensation [Recovered/Resolved]
  - Injection site urticaria [Recovered/Resolved]
